FAERS Safety Report 5329064-8 (Version None)
Quarter: 2007Q2

REPORT INFORMATION
  Report Type: 
  Country: None (occurrence: None)
  Receive Date: 20070518
  Receipt Date: 20070507
  Transmission Date: 20071010
  Serious: Yes (Hospitalization, Other)
  Sender: FDA-Public Use
  Company Number: US-PFIZER INC-2006130230

PATIENT
  Sex: Female

DRUGS (2)
  1. CELEBREX [Suspect]
     Indication: INFLAMMATION
  2. CELEBREX [Suspect]
     Indication: BACK PAIN

REACTIONS (3)
  - BLINDNESS [None]
  - CEREBROVASCULAR ACCIDENT [None]
  - PERSONALITY CHANGE [None]
